FAERS Safety Report 18940256 (Version 1)
Quarter: 2021Q1

REPORT INFORMATION
  Report Type: Spontaneous
  Country: US (occurrence: US)
  Receive Date: 20210225
  Receipt Date: 20210225
  Transmission Date: 20210420
  Serious: Yes (Hospitalization)
  Sender: FDA-Public Use
  Company Number: None

PATIENT
  Age: 67 Year
  Sex: Male
  Weight: 92.25 kg

DRUGS (5)
  1. BAMLANIVIMAB. [Suspect]
     Active Substance: BAMLANIVIMAB
  2. FLOMAX [Concomitant]
     Active Substance: TAMSULOSIN HYDROCHLORIDE
  3. CENTRUM SILVER [Concomitant]
     Active Substance: MINERALS\VITAMINS
  4. PFIZER?BIONTECH COVID?19 VACCINE [Suspect]
     Active Substance: TOZINAMERAN
  5. LOSARTAN. [Concomitant]
     Active Substance: LOSARTAN

REACTIONS (9)
  - Disorientation [None]
  - Cough [None]
  - Loss of consciousness [None]
  - Myalgia [None]
  - Feeling abnormal [None]
  - Dysstasia [None]
  - Chills [None]
  - SARS-CoV-2 test positive [None]
  - Face injury [None]

NARRATIVE: CASE EVENT DATE: 20210212
